FAERS Safety Report 6844085-1 (Version None)
Quarter: 2010Q3

REPORT INFORMATION
  Report Type: 
  Country: None (occurrence: None)
  Receive Date: 20100715
  Receipt Date: 20100706
  Transmission Date: 20110219
  Serious: Yes (Hospitalization)
  Sender: FDA-Public Use
  Company Number: AT-JNJFOC-20100606657

PATIENT
  Age: 76 Year
  Sex: Female
  Weight: 78 kg

DRUGS (8)
  1. SIMPONI [Suspect]
     Indication: RHEUMATOID ARTHRITIS
     Route: 058
  2. EBETREXAT [Concomitant]
     Indication: RHEUMATOID ARTHRITIS
     Route: 048
  3. OLEOVIT-D3 [Concomitant]
     Route: 048
  4. BISOPROLOL [Concomitant]
     Route: 048
  5. LOSARTAN POSTASSIUM [Concomitant]
     Indication: HYPERTENSION
     Route: 048
  6. MOVALIS [Concomitant]
     Route: 048
  7. PREDNISOLON [Concomitant]
     Route: 048
  8. BONIVA [Concomitant]
     Indication: HYPERTENSION
     Route: 042

REACTIONS (3)
  - ANGIOMYOLIPOMA [None]
  - BLOOD PRESSURE INCREASED [None]
  - GASTRITIS [None]
